FAERS Safety Report 9667735 (Version 1)
Quarter: 2013Q4

REPORT INFORMATION
  Report Type: Report from Study
  Country: BG (occurrence: BG)
  Receive Date: 20131104
  Receipt Date: 20131104
  Transmission Date: 20140711
  Serious: Yes (Other)
  Sender: FDA-Public Use
  Company Number: BG-BAYER-2013-133659

PATIENT
  Age: 17 Year
  Sex: Male

DRUGS (2)
  1. BETAFERON [Suspect]
     Dosage: 1 FL. EVERY OTHER DAY
  2. OCTAGAM [IMMUNOGLOBULIN] [Concomitant]
     Indication: MULTIPLE SCLEROSIS
     Dosage: UNK
     Dates: start: 201307

REACTIONS (3)
  - Multiple sclerosis relapse [None]
  - Drug ineffective [None]
  - Drug specific antibody present [None]
